FAERS Safety Report 8041045-2 (Version None)
Quarter: 2012Q1

REPORT INFORMATION
  Report Type: 
  Country: None (occurrence: None)
  Receive Date: 20120109
  Receipt Date: 20111227
  Transmission Date: 20120608
  Serious: Yes (Hospitalization)
  Sender: FDA-Public Use
  Company Number: 2011P1015345

PATIENT
  Age: 41 Year
  Sex: Female

DRUGS (1)
  1. ADENOSINE [Suspect]
     Indication: PALPITATIONS
     Dosage: 6 MG;X1;IV
     Route: 042

REACTIONS (6)
  - ARTERIOSPASM CORONARY [None]
  - ELECTROCARDIOGRAM ST SEGMENT ELEVATION [None]
  - DYSPNOEA [None]
  - SUPRAVENTRICULAR TACHYCARDIA [None]
  - TROPONIN T INCREASED [None]
  - ELECTROCARDIOGRAM ST SEGMENT DEPRESSION [None]
